FAERS Safety Report 24759413 (Version 1)
Quarter: 2024Q4

REPORT INFORMATION
  Report Type: Spontaneous
  Country: US (occurrence: US)
  Receive Date: 20241220
  Receipt Date: 20241220
  Transmission Date: 20250114
  Serious: No
  Sender: BRAEBURN PHARMACEUTICALS
  Company Number: US-BRAEBURN-US-BRA-24-000972

PATIENT
  Sex: Male

DRUGS (1)
  1. BRIXADI [Suspect]
     Active Substance: BUPRENORPHINE
     Indication: Product used for unknown indication
     Dosage: 128 MILLIGRAM, MONTHLY
     Route: 058
     Dates: start: 20240829, end: 20240829

REACTIONS (6)
  - Abdominal discomfort [Recovered/Resolved]
  - Myalgia [Unknown]
  - Urinary retention [Unknown]
  - Headache [Unknown]
  - Anxiety [Unknown]
  - Withdrawal syndrome [Recovered/Resolved]
